FAERS Safety Report 9334552 (Version 1)
Quarter: 2013Q2

REPORT INFORMATION
  Report Type: Spontaneous
  Country: US (occurrence: US)
  Receive Date: 20130606
  Receipt Date: 20130606
  Transmission Date: 20140414
  Serious: No
  Sender: FDA-Public Use
  Company Number: US-AMGEN-USASP2013013463

PATIENT
  Sex: Female

DRUGS (6)
  1. PROLIA [Suspect]
     Indication: OSTEOPOROSIS POSTMENOPAUSAL
     Dosage: UNK
     Dates: start: 201102
  2. ASPIRIN [Concomitant]
     Indication: DIABETES MELLITUS
     Dosage: 81 MG, QD
     Route: 048
  3. LEXAPRO [Concomitant]
     Indication: DEPRESSION
     Dosage: 10 MG, QD
     Route: 048
  4. GALANTAMINE [Concomitant]
     Indication: DEMENTIA
     Dosage: 4 MG, BID
     Route: 048
  5. NAMENDA [Concomitant]
     Indication: DEMENTIA
     Dosage: 5 MG, BID
     Route: 048
  6. QUETIAPINE [Concomitant]
     Indication: PSYCHOTIC DISORDER
     Dosage: 60 UNK, BID
     Route: 048

REACTIONS (3)
  - Bone density decreased [Unknown]
  - Mobility decreased [Unknown]
  - Drug ineffective [Unknown]
